FAERS Safety Report 23226171 (Version 7)
Quarter: 2025Q1

REPORT INFORMATION
  Report Type: Spontaneous
  Country: US (occurrence: US)
  Receive Date: 20231124
  Receipt Date: 20250313
  Transmission Date: 20250409
  Serious: Yes (Hospitalization, Other)
  Sender: CSL BEHRING
  Company Number: US-BEH-2023165660

PATIENT
  Age: 56 Year
  Sex: Female

DRUGS (105)
  1. HIZENTRA [Suspect]
     Active Substance: HUMAN IMMUNOGLOBULIN G
     Indication: Immunodeficiency
     Dosage: 12 GRAM, QW
     Route: 058
     Dates: start: 20220604
  2. HIZENTRA [Suspect]
     Active Substance: HUMAN IMMUNOGLOBULIN G
     Indication: Hypogammaglobulinaemia
     Dosage: 12 GRAM, QW
     Route: 058
     Dates: start: 20210831
  3. HIZENTRA [Suspect]
     Active Substance: HUMAN IMMUNOGLOBULIN G
     Indication: Immunodeficiency common variable
     Dosage: 12 GRAM, QW
     Route: 058
     Dates: start: 20241005
  4. HIZENTRA [Suspect]
     Active Substance: HUMAN IMMUNOGLOBULIN G
     Dosage: 12 GRAM, QW
     Route: 058
  5. ACETAZOLAMIDE [Concomitant]
     Active Substance: ACETAZOLAMIDE
  6. ACETAZOLAMIDE [Concomitant]
     Active Substance: ACETAZOLAMIDE
  7. ASPIRIN [Concomitant]
     Active Substance: ASPIRIN
  8. AZITHROMYCIN MONOHYDRATE [Concomitant]
     Active Substance: AZITHROMYCIN MONOHYDRATE
  9. BENZONATATE [Concomitant]
     Active Substance: BENZONATATE
  10. BETAMETASON [BETAMETHASONE SODIUM PHOSPHATE] [Concomitant]
  11. BETAMETHASONE DIPROPIONATE [Concomitant]
     Active Substance: BETAMETHASONE DIPROPIONATE
  12. BUDESONIDE [Concomitant]
     Active Substance: BUDESONIDE
  13. CLARITHROMYCIN [Concomitant]
     Active Substance: CLARITHROMYCIN
  14. CLOTRIMAZOLE [Concomitant]
     Active Substance: CLOTRIMAZOLE
  15. CODEINE [Concomitant]
     Active Substance: CODEINE
  16. CORLANOR [Concomitant]
     Active Substance: IVABRADINE HYDROCHLORIDE
  17. CORLANOR [Concomitant]
     Active Substance: IVABRADINE HYDROCHLORIDE
  18. CRESTOR [Concomitant]
     Active Substance: ROSUVASTATIN CALCIUM
  19. DAPSONE [Concomitant]
     Active Substance: DAPSONE
  20. DEPO-MEDROL [Concomitant]
     Active Substance: METHYLPREDNISOLONE ACETATE
  21. DULERA [Concomitant]
     Active Substance: FORMOTEROL FUMARATE DIHYDRATE\MOMETASONE FUROATE
  22. EMGALITY [Concomitant]
     Active Substance: GALCANEZUMAB-GNLM
  23. EZETIMIBE [Concomitant]
     Active Substance: EZETIMIBE
  24. FASENRA [Concomitant]
     Active Substance: BENRALIZUMAB
  25. FOLIC ACID [Concomitant]
     Active Substance: FOLIC ACID
  26. FUROSEMIDE [Concomitant]
     Active Substance: FUROSEMIDE
  27. HISTEX DM [Concomitant]
     Active Substance: DEXTROMETHORPHAN HYDROBROMIDE\PHENYLEPHRINE HYDROCHLORIDE\TRIPROLIDINE HYDROCHLORIDE
  28. HUMIRA [Concomitant]
     Active Substance: ADALIMUMAB
  29. HYDROCODONE [Concomitant]
     Active Substance: HYDROCODONE
  30. HYDROCHLOROTHIAZIDE [Concomitant]
     Active Substance: HYDROCHLOROTHIAZIDE
  31. HYDROCODONE BITARTRATE AND ACETAMINOPHEN [Concomitant]
     Active Substance: ACETAMINOPHEN\HYDROCODONE BITARTRATE
  32. HYDROXYZINUM ZENTIVA [Concomitant]
  33. IPRATROPIUM [Concomitant]
     Active Substance: IPRATROPIUM
  34. ISOSORBIDE MONONITRATE [Concomitant]
     Active Substance: ISOSORBIDE MONONITRATE
  35. JANUVIA [Concomitant]
     Active Substance: SITAGLIPTIN PHOSPHATE
  36. KENALOG [Concomitant]
     Active Substance: TRIAMCINOLONE ACETONIDE
  37. CLARITHROMYCIN [Concomitant]
     Active Substance: CLARITHROMYCIN
  38. MESTINON [Concomitant]
     Active Substance: PYRIDOSTIGMINE BROMIDE
  39. METHOCARBAMOL [Concomitant]
     Active Substance: METHOCARBAMOL
  40. METHOTREXATE [Concomitant]
     Active Substance: METHOTREXATE
  41. MIRAPEX [Concomitant]
     Active Substance: PRAMIPEXOLE DIHYDROCHLORIDE
  42. MOTEGRITY [Concomitant]
     Active Substance: PRUCALOPRIDE SUCCINATE
  43. NITROGLYCERIN [Concomitant]
     Active Substance: NITROGLYCERIN
  44. NORTRIPTYLINE [Concomitant]
     Active Substance: NORTRIPTYLINE
  45. NYSTATIN [Concomitant]
     Active Substance: NYSTATIN
  46. POTASSIUM CHLORIDE [Concomitant]
     Active Substance: POTASSIUM CHLORIDE
  47. PRAMIPEXOLE [Concomitant]
     Active Substance: PRAMIPEXOLE
  48. PREDNISONE [Concomitant]
     Active Substance: PREDNISONE
  49. PREDNISONE [Concomitant]
     Active Substance: PREDNISONE
  50. OMEPRAZOLE [Concomitant]
     Active Substance: OMEPRAZOLE
  51. QVAR REDIHALER [Concomitant]
     Active Substance: BECLOMETHASONE DIPROPIONATE
  52. ROSUVASTATIN [Concomitant]
     Active Substance: ROSUVASTATIN
  53. SINGULAIR [Concomitant]
     Active Substance: MONTELUKAST SODIUM
  54. SPIRIVA [Concomitant]
     Active Substance: TIOTROPIUM BROMIDE MONOHYDRATE
  55. SPIRONOLACTONE [Concomitant]
     Active Substance: SPIRONOLACTONE
  56. TIZANIDINE [Concomitant]
     Active Substance: TIZANIDINE
  57. UBRELVY [Concomitant]
     Active Substance: UBROGEPANT
  58. VERAPAMIL [Concomitant]
     Active Substance: VERAPAMIL HYDROCHLORIDE
  59. VITAMIN D NOS [Concomitant]
     Active Substance: CHOLECALCIFEROL\ERGOCALCIFEROL
  60. WARFARIN [Concomitant]
     Active Substance: WARFARIN
  61. XELJANZ XR [Concomitant]
     Active Substance: TOFACITINIB CITRATE
  62. XOPENEX [Concomitant]
     Active Substance: LEVALBUTEROL HYDROCHLORIDE
  63. ZETIA [Concomitant]
     Active Substance: EZETIMIBE
  64. ZOFRAN [Concomitant]
     Active Substance: ONDANSETRON HYDROCHLORIDE
  65. ZONEGRAN [Concomitant]
     Active Substance: ZONISAMIDE
  66. ZONISAMIDE [Concomitant]
     Active Substance: ZONISAMIDE
  67. TEZSPIRE [Concomitant]
     Active Substance: TEZEPELUMAB-EKKO
  68. ATROPINE SULFATE [Concomitant]
     Active Substance: ATROPINE SULFATE
  69. BOTOX [Concomitant]
     Active Substance: ONABOTULINUMTOXINA
  70. DEXAMETHASONE PHOSPHATE [Concomitant]
     Active Substance: DEXAMETHASONE PHOSPHATE
  71. DICLOFENAC [Concomitant]
     Active Substance: DICLOFENAC
  72. DOXYCYCLINE HYCLATE [Concomitant]
     Active Substance: DOXYCYCLINE HYCLATE
  73. DULOXETINE [Concomitant]
     Active Substance: DULOXETINE
  74. EPINEPHRINE [Concomitant]
     Active Substance: EPINEPHRINE
  75. ERYTHROMYCIN [Concomitant]
     Active Substance: ERYTHROMYCIN
  76. ESTRADIOL [Concomitant]
     Active Substance: ESTRADIOL
  77. ESTRADIOL [Concomitant]
     Active Substance: ESTRADIOL
  78. FLECAINIDE [Concomitant]
     Active Substance: FLECAINIDE
  79. GABAPENTIN [Concomitant]
     Active Substance: GABAPENTIN
  80. A-HYDROCORT [Concomitant]
     Active Substance: HYDROCORTISONE SODIUM SUCCINATE
  81. A-HYDROCORT [Concomitant]
     Active Substance: HYDROCORTISONE SODIUM SUCCINATE
  82. KETOROLAC [Concomitant]
     Active Substance: KETOROLAC TROMETHAMINE
  83. KLOR-CON M20 [Concomitant]
     Active Substance: POTASSIUM CHLORIDE
  84. LEVALBUTEROL [Concomitant]
     Active Substance: LEVALBUTEROL
  85. LIDOCAINE [Concomitant]
     Active Substance: LIDOCAINE
  86. LOPERAMIDE [Concomitant]
     Active Substance: LOPERAMIDE
  87. METHENAMINE [Concomitant]
     Active Substance: METHENAMINE
  88. METHYLPREDNISOLONE [Concomitant]
     Active Substance: METHYLPREDNISOLONE
  89. MOMETASONE [Concomitant]
     Active Substance: MOMETASONE
  90. MONTELUKAST [Concomitant]
     Active Substance: MONTELUKAST
  91. NALOXONE HCL [Concomitant]
     Active Substance: NALOXONE HYDROCHLORIDE
  92. ONDANSETRON [Concomitant]
     Active Substance: ONDANSETRON
  93. ONDANSETRON [Concomitant]
     Active Substance: ONDANSETRON
  94. OXYBUTYNIN [Concomitant]
     Active Substance: OXYBUTYNIN
  95. OXYBUTYNIN [Concomitant]
     Active Substance: OXYBUTYNIN
  96. OXYCODONE [Concomitant]
     Active Substance: OXYCODONE
  97. OZEMPIC [Concomitant]
     Active Substance: SEMAGLUTIDE
  98. PANTOPRAZOLE [Concomitant]
     Active Substance: PANTOPRAZOLE
  99. POTASSIUM CHLORIDE [Concomitant]
     Active Substance: POTASSIUM CHLORIDE
  100. PREDNISOLONE [Concomitant]
     Active Substance: PREDNISOLONE
  101. PROMETHAZINE [Concomitant]
     Active Substance: PROMETHAZINE HYDROCHLORIDE
  102. TAMSULOSIN [Concomitant]
     Active Substance: TAMSULOSIN
  103. TOPIRAMATE [Concomitant]
     Active Substance: TOPIRAMATE
  104. TOPIRAMATE [Concomitant]
     Active Substance: TOPIRAMATE
  105. TREMFYA [Concomitant]
     Active Substance: GUSELKUMAB

REACTIONS (24)
  - Urinary tract infection [Unknown]
  - Drug ineffective [Not Recovered/Not Resolved]
  - Infection [Not Recovered/Not Resolved]
  - Spinal fracture [Not Recovered/Not Resolved]
  - Pain [Not Recovered/Not Resolved]
  - Fatigue [Not Recovered/Not Resolved]
  - Alopecia [Not Recovered/Not Resolved]
  - Infection [Unknown]
  - Pyrexia [Unknown]
  - Hyperhidrosis [Unknown]
  - Pain [Unknown]
  - Loss of personal independence in daily activities [Not Recovered/Not Resolved]
  - Pain [Not Recovered/Not Resolved]
  - Fatigue [Not Recovered/Not Resolved]
  - Alopecia [Not Recovered/Not Resolved]
  - Infection [Unknown]
  - Pain [Unknown]
  - Ill-defined disorder [Unknown]
  - Loss of personal independence in daily activities [Not Recovered/Not Resolved]
  - Pain [Unknown]
  - Infection [Unknown]
  - Arthralgia [Unknown]
  - Asthma [Not Recovered/Not Resolved]
  - Pain [Not Recovered/Not Resolved]

NARRATIVE: CASE EVENT DATE: 20231001
